FAERS Safety Report 4621559-5 (Version None)
Quarter: 2005Q1

REPORT INFORMATION
  Report Type: 
  Country: None (occurrence: None)
  Receive Date: 20050329
  Receipt Date: 20050314
  Transmission Date: 20050727
  Serious: Yes (Other)
  Sender: FDA-Public Use
  Company Number: 2005044801

PATIENT
  Age: 29 Year
  Sex: Female
  Weight: 63.5036 kg

DRUGS (2)
  1. ZYRTEC [Suspect]
     Indication: HYPERSENSITIVITY
     Dosage: 10 MG (10 MG, 1 IN 1 D), ORAL/2 YEARS AGO
     Route: 048
  2. ZYRTEC [Suspect]
     Indication: SINUS DISORDER
     Dosage: 10 MG (10 MG, 1 IN 1 D), ORAL/2 YEARS AGO
     Route: 048

REACTIONS (2)
  - MEDICATION ERROR [None]
  - URTICARIA [None]
